FAERS Safety Report 17057088 (Version 1)
Quarter: 2019Q4

REPORT INFORMATION
  Report Type: Other
  Country: GB (occurrence: GB)
  Receive Date: 20191121
  Receipt Date: 20191121
  Transmission Date: 20200122
  Serious: Yes (Death)
  Sender: FDA-Public Use
  Company Number: GB-EMCURE PHARMACEUTICALS LTD-2008-EPL-0002

PATIENT
  Age: 64 Year
  Sex: Female

DRUGS (2)
  1. DIAZEPAM. [Suspect]
     Active Substance: DIAZEPAM
     Dosage: UNK
  2. SERTRALINE HYDROCHLORIDE. [Suspect]
     Active Substance: SERTRALINE HYDROCHLORIDE
     Dosage: BOLUS OVERDOSE
     Route: 065

REACTIONS (3)
  - Completed suicide [Fatal]
  - Drowning [Fatal]
  - Overdose [Fatal]

NARRATIVE: CASE EVENT DATE: 20060830
